FAERS Safety Report 24675957 (Version 2)
Quarter: 2024Q4

REPORT INFORMATION
  Report Type: Spontaneous
  Country: US (occurrence: US)
  Receive Date: 20241128
  Receipt Date: 20241210
  Transmission Date: 20250115
  Serious: Yes (Other)
  Sender: CSL BEHRING
  Company Number: US-BEH-2024186552

PATIENT
  Sex: Female

DRUGS (3)
  1. HIZENTRA [Suspect]
     Active Substance: HUMAN IMMUNOGLOBULIN G
     Indication: Tympanic membrane perforation
     Dosage: UNK
     Route: 065
  2. HIZENTRA [Suspect]
     Active Substance: HUMAN IMMUNOGLOBULIN G
     Dosage: 10 G, QW
     Route: 058
  3. TRAZODONE HCL [Concomitant]
     Active Substance: TRAZODONE HYDROCHLORIDE
     Dosage: 100 MG

REACTIONS (12)
  - Nephrolithiasis [Unknown]
  - Pneumonia [Unknown]
  - Injection site erythema [Unknown]
  - Sinusitis [Unknown]
  - Ear infection [Unknown]
  - Anxiety [Unknown]
  - Depression [Unknown]
  - Product dose omission in error [Unknown]
  - Product use issue [Unknown]
  - Off label use [Unknown]
  - Hypersensitivity [Unknown]
  - Injection site bruising [Unknown]

NARRATIVE: CASE EVENT DATE: 20240101
